FAERS Safety Report 24168777 (Version 1)
Quarter: 2024Q3

REPORT INFORMATION
  Report Type: Spontaneous
  Country: US (occurrence: US)
  Receive Date: 20240802
  Receipt Date: 20240802
  Transmission Date: 20241017
  Serious: No
  Sender: SANOFI AVENTIS
  Company Number: US-SA-SAC20240730000942

PATIENT
  Age: 54 Year
  Sex: Female
  Weight: 90 kg

DRUGS (6)
  1. DUPIXENT [Suspect]
     Active Substance: DUPILUMAB
     Indication: Dermatitis atopic
     Dosage: 300 GM QOW
     Route: 058
     Dates: start: 20240215
  2. LISINOPRIL [Concomitant]
     Active Substance: LISINOPRIL
  3. PREMARIN [Concomitant]
     Active Substance: ESTROGENS, CONJUGATED
  4. MOUNJARO [Concomitant]
     Active Substance: TIRZEPATIDE
  5. ATORVASTATIN CALCIUM [Concomitant]
     Active Substance: ATORVASTATIN CALCIUM
  6. METFORMIN HYDROCHLORIDE [Concomitant]
     Active Substance: METFORMIN HYDROCHLORIDE

REACTIONS (6)
  - Urinary tract infection [Unknown]
  - COVID-19 [Unknown]
  - Dermatitis atopic [Not Recovered/Not Resolved]
  - Rash macular [Not Recovered/Not Resolved]
  - Dry skin [Not Recovered/Not Resolved]
  - Rash [Not Recovered/Not Resolved]

NARRATIVE: CASE EVENT DATE: 20240101
